FAERS Safety Report 4463779-9 (Version None)
Quarter: 2004Q3

REPORT INFORMATION
  Report Type: 
  Country: None (occurrence: None)
  Receive Date: 20040929
  Receipt Date: 20040917
  Transmission Date: 20050211
  Serious: Yes (Hospitalization)
  Sender: FDA-Public Use
  Company Number: 2004RL000106

PATIENT
  Age: 35 Year
  Sex: Male

DRUGS (1)
  1. RYTHMOL [Suspect]
     Indication: ATRIAL FIBRILLATION
     Dosage: 2 UNK; PO
     Route: 048
     Dates: start: 20040911, end: 20040911

REACTIONS (2)
  - ATRIAL FIBRILLATION [None]
  - DRUG INEFFECTIVE [None]
